FAERS Safety Report 21098276 (Version 1)
Quarter: 2022Q3

REPORT INFORMATION
  Report Type: Spontaneous
  Country: CA (occurrence: CA)
  Receive Date: 20220719
  Receipt Date: 20220719
  Transmission Date: 20221026
  Serious: Yes (Hospitalization, Other)
  Sender: FDA-Public Use
  Company Number: CA-TEVA-2022-CA-2054959

PATIENT
  Age: 7 Year
  Sex: Female
  Weight: 28 kg

DRUGS (4)
  1. ONDANSETRON [Suspect]
     Active Substance: ONDANSETRON
     Indication: Gastroenteritis
     Route: 048
  2. ONDANSETRON [Suspect]
     Active Substance: ONDANSETRON
     Dosage: 4 MILLIGRAM DAILY; THERAPY DURATION 1.0 DAYS
     Route: 048
  3. ONDANSETRON [Suspect]
     Active Substance: ONDANSETRON
     Dosage: 4 MILLIGRAM DAILY; THERAPY DURATION 1.0 DAYS
     Route: 048
  4. ADVIL [Concomitant]
     Active Substance: IBUPROFEN
     Indication: Product used for unknown indication
     Route: 065

REACTIONS (17)
  - Chills [Recovered/Resolved]
  - Hypotension [Recovered/Resolved]
  - Pruritus [Recovered/Resolved]
  - Tachycardia [Recovered/Resolved]
  - Urticaria [Recovered/Resolved]
  - Blood bilirubin abnormal [Recovered/Resolved]
  - Blood bilirubin increased [Recovered/Resolved]
  - Blood lactic acid increased [Recovered/Resolved]
  - Carbon dioxide abnormal [Recovered/Resolved]
  - Carbon dioxide decreased [Recovered/Resolved]
  - Haemoglobin abnormal [Recovered/Resolved]
  - Haemoglobin increased [Recovered/Resolved]
  - Monocyte count increased [Recovered/Resolved]
  - Neutrophil count abnormal [Recovered/Resolved]
  - Neutrophil count increased [Recovered/Resolved]
  - Red blood cell count increased [Recovered/Resolved]
  - White blood cell count increased [Recovered/Resolved]
